FAERS Safety Report 9558752 (Version 1)
Quarter: 2013Q3

REPORT INFORMATION
  Report Type: Spontaneous
  Country: US (occurrence: US)
  Receive Date: 20130926
  Receipt Date: 20130926
  Transmission Date: 20140515
  Serious: No
  Sender: FDA-Public Use
  Company Number: US-BIOGENIDEC-2013BI046702

PATIENT
  Age: 70 Year
  Sex: Male

DRUGS (10)
  1. TECFIDERA [Suspect]
     Indication: MULTIPLE SCLEROSIS
     Route: 048
     Dates: start: 20130507
  2. MAGNESIUM [Concomitant]
  3. VITAMIN D [Concomitant]
  4. XALATAN [Concomitant]
  5. ASPIRIN [Concomitant]
  6. CENTRUM [Concomitant]
  7. CIALIS [Concomitant]
  8. OXYTROL [Concomitant]
  9. ACTONEL [Concomitant]
  10. MAGNESIUM [Concomitant]

REACTIONS (3)
  - Vertigo [Unknown]
  - Flushing [Unknown]
  - Nausea [Unknown]
